FAERS Safety Report 7496059-8 (Version None)
Quarter: 2011Q2

REPORT INFORMATION
  Report Type: 
  Country: None (occurrence: None)
  Receive Date: 20110520
  Receipt Date: 20110520
  Transmission Date: 20111010
  Serious: Yes (Other)
  Sender: FDA-Public Use
  Company Number: None

PATIENT
  Age: 60 Year
  Sex: Male
  Weight: 99.7913 kg

DRUGS (1)
  1. DESMOPRESSIN ACETATE [Suspect]
     Dosage: USE AS DIRECTED

REACTIONS (2)
  - INCORRECT DOSE ADMINISTERED BY DEVICE [None]
  - DEVICE MALFUNCTION [None]
